FAERS Safety Report 9033387 (Version 1)
Quarter: 2013Q1

REPORT INFORMATION
  Report Type: Spontaneous
  Country: US (occurrence: US)
  Receive Date: 20130128
  Receipt Date: 20130128
  Transmission Date: 20140127
  Serious: No
  Sender: FDA-Public Use
  Company Number: US-009507513-1301USA011148

PATIENT
  Age: 26 Year
  Sex: Female

DRUGS (1)
  1. IMPLANON [Suspect]
     Indication: CONTRACEPTION
     Dosage: UNK 1 ROD FOR 3 YEARS LEFT ARM
     Route: 059
     Dates: start: 20100119

REACTIONS (2)
  - Incorrect drug administration duration [Unknown]
  - Expired drug administered [Unknown]
